FAERS Safety Report 24096927 (Version 1)
Quarter: 2024Q3

REPORT INFORMATION
  Report Type: Spontaneous
  Country: US (occurrence: US)
  Receive Date: 20240716
  Receipt Date: 20240716
  Transmission Date: 20241017
  Serious: No
  Sender: GRIFOLS
  Company Number: US-IGSA-BIG0026563

PATIENT
  Age: 60 Year
  Sex: Male

DRUGS (3)
  1. GAMUNEX-C [Suspect]
     Active Substance: HUMAN IMMUNOGLOBULIN G
     Indication: Chronic inflammatory demyelinating polyradiculoneuropathy
     Dosage: 165 GRAM, UNKNOWN
     Route: 042
     Dates: start: 2020
  2. GAMUNEX-C [Suspect]
     Active Substance: HUMAN IMMUNOGLOBULIN G
     Dosage: 165 GRAM, UNKNOWN
     Route: 042
     Dates: start: 20230223
  3. LYRICA [Concomitant]
     Active Substance: PREGABALIN
     Dosage: 50 MILLIGRAM, UNKNOWN

REACTIONS (1)
  - Rash [Recovering/Resolving]
